FAERS Safety Report 7129221-4 (Version None)
Quarter: 2010Q4

REPORT INFORMATION
  Report Type: 
  Country: None (occurrence: None)
  Receive Date: 20101130
  Receipt Date: 20101123
  Transmission Date: 20110411
  Serious: Yes (Hospitalization)
  Sender: FDA-Public Use
  Company Number: US-B.I. PHARMACEUTICALS,INC./RIDGEFIELD-2010-BP-13271BP

PATIENT
  Sex: Female

DRUGS (3)
  1. PRADAXA [Suspect]
     Indication: CEREBROVASCULAR ACCIDENT PROPHYLAXIS
     Dosage: 300 MG
     Route: 048
     Dates: start: 20101101, end: 20101101
  2. PRADAXA [Suspect]
     Indication: THROMBOSIS PROPHYLAXIS
  3. MULTAQ [Suspect]
     Dates: start: 20101101, end: 20101101

REACTIONS (1)
  - COAGULATION TIME PROLONGED [None]
